FAERS Safety Report 8776613 (Version 4)
Quarter: 2013Q1

REPORT INFORMATION
  Report Type: Report from Study
  Country: BR (occurrence: BR)
  Receive Date: 20120911
  Receipt Date: 20130109
  Transmission Date: 20140127
  Serious: Yes (Hospitalization, Other)
  Sender: FDA-Public Use
  Company Number: BR-ROCHE-1118639

PATIENT
  Age: 60 Year
  Sex: Female
  Weight: 80 kg

DRUGS (8)
  1. RITUXIMAB [Suspect]
     Indication: RHEUMATOID ARTHRITIS
     Route: 042
     Dates: start: 20110609, end: 20120229
  2. VENLAFAXINE [Concomitant]
     Indication: DEPRESSION
  3. OMEPRAZOLE [Concomitant]
  4. METICORTEN [Concomitant]
     Route: 065
  5. CITALOPRAM [Concomitant]
     Route: 065
  6. DORFLEX [Concomitant]
  7. LISADOR [Concomitant]
  8. PENTALAC [Concomitant]

REACTIONS (11)
  - Pulmonary embolism [Recovered/Resolved]
  - Thrombosis [Unknown]
  - Fracture [Unknown]
  - Lung disorder [Not Recovered/Not Resolved]
  - Erythema [Unknown]
  - Erythema [Unknown]
  - Headache [Unknown]
  - Agitation [Unknown]
  - Nervousness [Unknown]
  - Foot fracture [Recovered/Resolved]
  - Deep vein thrombosis [Recovered/Resolved]
